FAERS Safety Report 8010264-3 (Version None)
Quarter: 2011Q4

REPORT INFORMATION
  Report Type: 
  Country: None (occurrence: None)
  Receive Date: 20111228
  Receipt Date: 20111221
  Transmission Date: 20120403
  Serious: Yes (Hospitalization)
  Sender: FDA-Public Use
  Company Number: JP-JNJFOC-20111207084

PATIENT
  Sex: Male
  Weight: 66 kg

DRUGS (37)
  1. FLUOROMETHOLONE [Concomitant]
     Route: 047
     Dates: start: 20111028, end: 20111128
  2. ACETATED RINGER [Concomitant]
     Route: 042
     Dates: start: 20111211, end: 20111211
  3. SOLDEM 1 [Concomitant]
     Route: 042
     Dates: start: 20111212, end: 20111213
  4. FENTANYL-100 [Concomitant]
     Indication: PAIN
     Route: 062
     Dates: start: 20111214
  5. URSO 250 [Concomitant]
     Route: 048
     Dates: start: 20111220
  6. ZOLPIDEM [Concomitant]
     Route: 048
  7. MIRTAZAPINE [Concomitant]
     Indication: PAIN
     Route: 048
  8. SOLULACT [Concomitant]
     Route: 042
     Dates: start: 20111211, end: 20111215
  9. VITAMEDIN [Concomitant]
     Route: 042
     Dates: start: 20111211, end: 20111215
  10. ATARAX [Concomitant]
     Route: 042
     Dates: start: 20111212, end: 20111215
  11. PENTAZOCINE LACTATE [Concomitant]
     Route: 042
     Dates: start: 20111215, end: 20111215
  12. MYONAL [Concomitant]
     Route: 048
  13. MUCOSTA [Concomitant]
     Route: 048
  14. DEXTROSE [Concomitant]
     Indication: PROPHYLAXIS
     Route: 042
     Dates: start: 20111215, end: 20111215
  15. XYLOCAINE [Concomitant]
     Route: 049
     Dates: start: 20111215, end: 20111215
  16. MAGNESIUM SULFATE [Concomitant]
     Indication: PROPHYLAXIS
     Route: 048
  17. CYMBALTA [Concomitant]
     Indication: PAIN
     Route: 048
  18. LOXOPROFEN [Concomitant]
     Indication: PAIN
     Route: 048
  19. REBAMIPIDE [Concomitant]
     Indication: PROPHYLAXIS
     Route: 048
  20. VITAMIN C [Concomitant]
     Route: 042
     Dates: start: 20111211, end: 20111215
  21. GABEXATE MESILATE [Concomitant]
     Indication: PROPHYLAXIS
     Route: 042
     Dates: start: 20111215, end: 20111215
  22. FLUMAZENIL [Concomitant]
     Route: 042
     Dates: start: 20111215, end: 20111215
  23. SULPIRIDE [Concomitant]
     Indication: PAIN
     Route: 048
  24. LEVOFLOXACIN [Concomitant]
     Route: 047
     Dates: start: 20111028, end: 20111128
  25. MECOBALAMIN [Concomitant]
     Indication: PAIN
     Route: 048
  26. LOXONIN [Concomitant]
     Route: 048
  27. SUNBAZON [Concomitant]
     Indication: PAIN
     Route: 048
  28. INFLUENZA HA VACCINE [Concomitant]
     Route: 058
     Dates: start: 20111115, end: 20111115
  29. FAMOTIDINE [Concomitant]
     Indication: PROPHYLAXIS
     Route: 042
     Dates: start: 20111212, end: 20111215
  30. PHYSIO [Concomitant]
     Route: 042
     Dates: start: 20111215, end: 20111216
  31. MIDAZOLAM [Concomitant]
     Route: 042
     Dates: start: 20111215, end: 20111215
  32. SCOPOLAMINE [Concomitant]
     Route: 030
     Dates: start: 20111215, end: 20111215
  33. FENTANYL [Suspect]
     Indication: PRODUCT USED FOR UNKNOWN INDICATION
     Dosage: 0.84 MG X 1 PER 1 DAY
     Route: 062
     Dates: start: 20111101, end: 20111214
  34. AMLODIN OD [Concomitant]
     Route: 048
  35. RESTAMIN [Concomitant]
     Route: 003
     Dates: start: 20111108
  36. SULBACTAM CEFOPERAZONE [Concomitant]
     Route: 042
     Dates: start: 20111211, end: 20111217
  37. SOLDEM 3A [Concomitant]
     Route: 042
     Dates: start: 20111212, end: 20111213

REACTIONS (1)
  - CHOLANGITIS ACUTE [None]
